FAERS Safety Report 8809999 (Version 2)
Quarter: 2012Q4

REPORT INFORMATION
  Report Type: 
  Country: US (occurrence: US)
  Receive Date: 20120926
  Receipt Date: 20121001
  Transmission Date: 20130627
  Serious: Yes (Hospitalization)
  Sender: FDA-Public Use
  Company Number: US-ALEXION-A201201729

PATIENT
  Age: 13 Year
  Sex: Male

DRUGS (8)
  1. SOLIRIS 300MG [Suspect]
     Indication: HAEMOLYTIC URAEMIC SYNDROME
     Dosage: 900 mg, qw
     Route: 042
     Dates: start: 20120817, end: 201209
  2. SOLIRIS 300MG [Suspect]
     Dosage: 1200 mg, q2w
     Route: 042
     Dates: start: 20120917
  3. MERCAPTOPURINE [Concomitant]
     Indication: COLITIS ULCERATIVE
     Dosage: UNK
  4. IRON [Concomitant]
     Dosage: UNK
  5. CALCIUM CARBONATE [Concomitant]
     Dosage: UNK
  6. PREDNISONE [Concomitant]
     Dosage: UNK
  7. PRILOSEC [Concomitant]
     Dosage: UNK
  8. AMOXICILLIN [Concomitant]
     Indication: PROPHYLAXIS

REACTIONS (3)
  - Clostridium difficile colitis [Recovering/Resolving]
  - Hyperkalaemia [Recovered/Resolved]
  - Hypotension [Recovered/Resolved]
